FAERS Safety Report 6874178-4 (Version None)
Quarter: 2010Q3

REPORT INFORMATION
  Report Type: 
  Country: None (occurrence: None)
  Receive Date: 20100723
  Receipt Date: 20090910
  Transmission Date: 20110219
  Serious: No
  Sender: FDA-Public Use
  Company Number: US-PFIZER INC-2009208923

PATIENT
  Sex: Male
  Weight: 78 kg

DRUGS (7)
  1. CHANTIX [Suspect]
     Indication: SMOKING CESSATION THERAPY
     Dosage: 0.5 MG, 2X/DAY
     Dates: start: 20090417, end: 20090423
  2. MORPHINE [Concomitant]
  3. LUPRON [Concomitant]
     Dosage: UNK
  4. CASODEX [Concomitant]
     Dosage: UNK
  5. VERAPAMIL [Concomitant]
     Dosage: UNK
  6. VICODIN [Concomitant]
     Dosage: UNK
  7. PREDNISONE [Concomitant]
     Dosage: UNK

REACTIONS (7)
  - ABDOMINAL DISCOMFORT [None]
  - DIZZINESS [None]
  - FEELING ABNORMAL [None]
  - GAIT DISTURBANCE [None]
  - HEADACHE [None]
  - NAUSEA [None]
  - SOMNOLENCE [None]
